FAERS Safety Report 13178067 (Version 1)
Quarter: 2017Q1

REPORT INFORMATION
  Report Type: Spontaneous
  Country: US (occurrence: US)
  Receive Date: 20170202
  Receipt Date: 20170202
  Transmission Date: 20170428
  Serious: No
  Sender: FDA-Public Use
  Company Number: US-AUROBINDO-AUR-APU-2015-11915

PATIENT

DRUGS (1)
  1. CEFDINIR FOR ORAL SUSPENSION 125 MG/5 ML [Suspect]
     Active Substance: CEFDINIR
     Indication: PRODUCT USED FOR UNKNOWN INDICATION
     Dosage: 125 MG/5ML, UNK
     Route: 048

REACTIONS (2)
  - No adverse event [Unknown]
  - Expired product administered [Unknown]
